FAERS Safety Report 6685913-2 (Version None)
Quarter: 2010Q2

REPORT INFORMATION
  Report Type: 
  Country: None (occurrence: None)
  Receive Date: 20100419
  Receipt Date: 20100318
  Transmission Date: 20101027
  Serious: No
  Sender: FDA-Public Use
  Company Number: US-BAYER-201013354BCC

PATIENT
  Age: 64 Year
  Sex: Male
  Weight: 104 kg

DRUGS (2)
  1. ALEVE (CAPLET) [Suspect]
     Indication: TINNITUS
     Dosage: AS USED: 440/220 MG  UNIT DOSE: 220 MG
     Route: 048
     Dates: start: 20100317
  2. CLARITIN-D [Concomitant]

REACTIONS (3)
  - HYPERTENSION [None]
  - INSOMNIA [None]
  - PARAESTHESIA [None]
